FAERS Safety Report 25544889 (Version 2)
Quarter: 2025Q3

REPORT INFORMATION
  Report Type: Spontaneous
  Country: US (occurrence: US)
  Receive Date: 20250711
  Receipt Date: 20250805
  Transmission Date: 20251021
  Serious: No
  Sender: BIOMARIN
  Company Number: US-SA-2025SA190310

PATIENT
  Age: 12 Year
  Sex: Male
  Weight: 41.7 kg

DRUGS (4)
  1. ALDURAZYME [Suspect]
     Active Substance: LARONIDASE
     Indication: Mucopolysaccharidosis I
     Dosage: 23.2 MG, QW
     Dates: start: 201812
  2. HEPARIN [Concomitant]
     Active Substance: HEPARIN SODIUM
     Indication: Product used for unknown indication
  3. LIDOCAINE AND PRILOCAINE [Concomitant]
     Active Substance: LIDOCAINE\PRILOCAINE
     Indication: Product used for unknown indication
  4. SODIUM CHLORIDE [Concomitant]
     Active Substance: SODIUM CHLORIDE
     Indication: Product used for unknown indication

REACTIONS (1)
  - Weight fluctuation [Unknown]

NARRATIVE: CASE EVENT DATE: 20250702
